FAERS Safety Report 9318897 (Version 2)
Quarter: 2013Q3

REPORT INFORMATION
  Report Type: Spontaneous
  Country: US (occurrence: US)
  Receive Date: 20130530
  Receipt Date: 20130702
  Transmission Date: 20140515
  Serious: Yes (Hospitalization, Other)
  Sender: FDA-Public Use
  Company Number: US-BAXTER-2013BAX018231

PATIENT
  Age: 71 Year
  Sex: Male

DRUGS (2)
  1. DIANEAL LOW CALCIUM [Suspect]
     Indication: PERITONEAL DIALYSIS
     Route: 033
     Dates: start: 201105
  2. DIANEAL LOW CALCIUM [Suspect]
     Indication: PERITONEAL DIALYSIS
     Route: 033
     Dates: start: 201105

REACTIONS (4)
  - Poor peripheral circulation [Recovering/Resolving]
  - Impaired healing [Recovering/Resolving]
  - Skin ulcer [Recovering/Resolving]
  - Dehydration [Recovering/Resolving]
